FAERS Safety Report 6943445-8 (Version None)
Quarter: 2010Q3

REPORT INFORMATION
  Report Type: 
  Country: None (occurrence: None)
  Receive Date: 20100826
  Receipt Date: 20100818
  Transmission Date: 20110219
  Serious: Yes (Death, Other)
  Sender: FDA-Public Use
  Company Number: US-AMGEN-QUU432504

PATIENT
  Sex: Female

DRUGS (2)
  1. NPLATE [Suspect]
     Indication: MYELODYSPLASTIC SYNDROME
     Dates: start: 20100308, end: 20100614
  2. CORTICOSTEROIDS [Concomitant]
     Dates: end: 20100310

REACTIONS (3)
  - BONE MARROW DISORDER [None]
  - MYELODYSPLASTIC SYNDROME [None]
  - SEPSIS [None]
